FAERS Safety Report 6522987-3 (Version None)
Quarter: 2009Q4

REPORT INFORMATION
  Report Type: 
  Country: None (occurrence: None)
  Receive Date: 20091230
  Receipt Date: 20091218
  Transmission Date: 20100525
  Serious: Yes (Death, Hospitalization)
  Sender: FDA-Public Use
  Company Number: US-AMGEN-US378778

PATIENT
  Sex: Male

DRUGS (15)
  1. NPLATE [Suspect]
     Indication: IDIOPATHIC THROMBOCYTOPENIC PURPURA
     Route: 058
     Dates: start: 20091120, end: 20091128
  2. CORTICOSTEROID NOS [Concomitant]
     Dates: start: 20091113, end: 20091205
  3. CYCLOPHOSPHAMIDE [Concomitant]
     Dates: start: 19991204, end: 20091204
  4. DOXYCYCLINE [Concomitant]
     Route: 042
     Dates: start: 20091115
  5. LEVOFLOXACIN [Concomitant]
     Route: 042
     Dates: start: 20091113
  6. MICAFUNGIN SODIUM [Concomitant]
     Route: 042
     Dates: start: 20091115
  7. METHYLPREDNISOLONE [Concomitant]
     Dates: start: 20091113
  8. OSELTAMIVIR [Concomitant]
     Dates: start: 20091113
  9. PIPERACILLIN AND TAZOBACTAM [Concomitant]
     Route: 042
     Dates: start: 20091113
  10. ALBUTEROL + IPRATROPIUM INHALER [Concomitant]
     Dates: start: 20091113
  11. VANCOMYCIN [Concomitant]
     Route: 042
     Dates: start: 20091113
  12. AMIODARONE [Concomitant]
     Dates: start: 20091113
  13. ESOMEPRAZOLE SODIUM (NEXIUM) [Concomitant]
     Route: 042
     Dates: start: 20091113
  14. FENTANYL-100 [Concomitant]
     Route: 042
     Dates: start: 20091113
  15. INSULIN [Concomitant]
     Route: 042
     Dates: start: 20091116

REACTIONS (15)
  - ACUTE RESPIRATORY DISTRESS SYNDROME [None]
  - AORTIC ARTERIOSCLEROSIS [None]
  - ARTERIOSCLEROSIS CORONARY ARTERY [None]
  - CARDIAC VALVE VEGETATION [None]
  - CELL DEATH [None]
  - FOCAL SEGMENTAL GLOMERULOSCLEROSIS [None]
  - GASTROINTESTINAL DISORDER [None]
  - HEPATIC CIRRHOSIS [None]
  - INTERSTITIAL LUNG DISEASE [None]
  - MYOCARDIAL ISCHAEMIA [None]
  - PNEUMONIA [None]
  - PULMONARY FIBROSIS [None]
  - RESPIRATORY FAILURE [None]
  - THROMBOCYTOPENIA [None]
  - TUBULOINTERSTITIAL NEPHRITIS [None]
